FAERS Safety Report 12998359 (Version 1)
Quarter: 2016Q4

REPORT INFORMATION
  Report Type: Spontaneous
  Country: US (occurrence: US)
  Receive Date: 20161203
  Receipt Date: 20161203
  Transmission Date: 20170207
  Serious: Yes (Life-Threatening, Hospitalization, Disabling)
  Sender: FDA-Public Use
  Company Number: None

PATIENT
  Age: 57 Year
  Sex: Male

DRUGS (1)
  1. PRALUENT [Suspect]
     Active Substance: ALIROCUMAB
     Indication: BLOOD CHOLESTEROL ABNORMAL
     Dosage: ?          QUANTITY:1 INJECTION(S);OTHER ROUTE:INJECTION IN STOMACH?
     Dates: start: 20151208

REACTIONS (5)
  - Pyrexia [None]
  - Myalgia [None]
  - Fatigue [None]
  - Weight decreased [None]
  - Dermatomyositis [None]

NARRATIVE: CASE EVENT DATE: 20151208
